FAERS Safety Report 14067240 (Version 1)
Quarter: 2017Q4

REPORT INFORMATION
  Report Type: Spontaneous
  Country: US (occurrence: US)
  Receive Date: 20171009
  Receipt Date: 20171009
  Transmission Date: 20180321
  Serious: Yes (Other)
  Sender: FDA-Public Use
  Company Number: US-BAUSCH-BL-2017-028681

PATIENT
  Age: 47 Year
  Sex: Female

DRUGS (3)
  1. TRETINOIN. [Suspect]
     Active Substance: TRETINOIN
     Indication: ANNULAR ELASTOLYTIC GIANT CELL GRANULOMA
     Dosage: EVERY OTHER DAY
     Route: 061
  2. TRETINOIN. [Suspect]
     Active Substance: TRETINOIN
     Dosage: DAILY USAGE
     Route: 061
  3. CLOBETASOL [Suspect]
     Active Substance: CLOBETASOL
     Indication: ANNULAR ELASTOLYTIC GIANT CELL GRANULOMA
     Route: 061

REACTIONS (2)
  - Dry skin [Unknown]
  - Drug ineffective [Unknown]
